FAERS Safety Report 6593579 (Version 2)
Quarter: 2013Q3

REPORT INFORMATION
  Report Type: Spontaneous
  Country: US (occurrence: US)
  Receive Date: 20080326
  Receipt Date: 20130925
  Transmission Date: 20140515
  Serious: Yes (Life-Threatening, Hospitalization, Other)
  Sender: FDA-Public Use
  Company Number: US-JNJFOC-20080305277

PATIENT
  Age: 47 Year
  Sex: Female

DRUGS (3)
  1. ACETAMINOPHEN [Suspect]
  2. ACETAMINOPHEN [Suspect]
     Indication: PAIN
     Dosage: 9000 MG OVER TWO DAYS
  3. UNSPECIFIED PRESCRIPTION PAIN MEDICATION [Concomitant]

REACTIONS (9)
  - Renal tubular necrosis [Unknown]
  - Overdose [Recovering/Resolving]
  - Acute hepatic failure [Recovering/Resolving]
  - Renal failure acute [Unknown]
  - Hypertension [Recovering/Resolving]
  - Pneumonia aspiration [Recovering/Resolving]
  - Delirium [Recovering/Resolving]
  - Urinary tract infection [Unknown]
  - Nephropathy toxic [Recovering/Resolving]
